FAERS Safety Report 6669694-4 (Version None)
Quarter: 2010Q2

REPORT INFORMATION
  Report Type: 
  Country: None (occurrence: None)
  Receive Date: 20100402
  Receipt Date: 20100319
  Transmission Date: 20101027
  Serious: Yes (Death)
  Sender: FDA-Public Use
  Company Number: 2010035714

PATIENT
  Age: 72 Year
  Sex: Female

DRUGS (1)
  1. FRAGMIN [Suspect]
     Indication: PROPHYLAXIS
     Dosage: 5000 IU, 1X/DAY AT 11:00 AM IN THE MORNING

REACTIONS (1)
  - PULMONARY EMBOLISM [None]
